FAERS Safety Report 9768205 (Version 1)
Quarter: 2013Q4

REPORT INFORMATION
  Report Type: Spontaneous
  Country: DE (occurrence: DE)
  Receive Date: 20131217
  Receipt Date: 20131217
  Transmission Date: 20140711
  Serious: Yes (Hospitalization)
  Sender: FDA-Public Use
  Company Number: DE-GLAXOSMITHKLINE-D0082255A

PATIENT
  Sex: Male

DRUGS (2)
  1. DUODART [Suspect]
     Indication: LOWER URINARY TRACT SYMPTOMS
     Route: 048
  2. ALFUZOSIN [Concomitant]
     Route: 065

REACTIONS (3)
  - Pelvic pain [Not Recovered/Not Resolved]
  - Testicular pain [Not Recovered/Not Resolved]
  - Anorectal discomfort [Not Recovered/Not Resolved]
